FAERS Safety Report 8020401-2 (Version None)
Quarter: 2012Q1

REPORT INFORMATION
  Report Type: 
  Country: None (occurrence: None)
  Receive Date: 20120103
  Receipt Date: 20111222
  Transmission Date: 20120608
  Serious: Yes (Other)
  Sender: FDA-Public Use
  Company Number: US-ELI_LILLY_AND_COMPANY-US201010001128

PATIENT
  Sex: Female
  Weight: 67 kg

DRUGS (15)
  1. FORTEO [Suspect]
     Dosage: 20 UG, QD
  2. DILTIAZEM HCL [Concomitant]
     Indication: CARDIAC DISORDER
  3. METOPROLOL TARTRATE [Concomitant]
     Dosage: 50 MG, BID
  4. SOTALOL HCL [Concomitant]
     Dosage: 80 MG, BID
  5. FORTEO [Suspect]
     Dosage: 20 UG, DAILY (1/D)
     Route: 065
  6. PRADAXA [Concomitant]
     Dosage: 150 MG, BID
  7. FORTEO [Suspect]
     Dosage: 20 UG, QD
  8. DIGOXIN [Concomitant]
     Indication: CARDIAC DISORDER
     Dosage: 125 UG, QD
     Route: 058
  9. LEXAPRO [Concomitant]
  10. FORTEO [Suspect]
     Indication: OSTEOPOROSIS
     Dosage: 20 UG, DAILY (1/D)
     Route: 065
     Dates: start: 20100908
  11. FORTEO [Suspect]
     Dosage: 20 UG, DAILY (1/D)
     Route: 065
     Dates: start: 20101201
  12. FORTEO [Suspect]
     Dosage: 20 UG, QD
     Route: 065
  13. FORTEO [Suspect]
     Dosage: 20 UG, DAILY (1/D)
     Route: 065
  14. FORTEO [Suspect]
     Dosage: 20 UG, QD
     Route: 065
  15. NOVOLOG [Concomitant]

REACTIONS (11)
  - OEDEMA PERIPHERAL [None]
  - MUSCULOSKELETAL PAIN [None]
  - JOINT SWELLING [None]
  - ROAD TRAFFIC ACCIDENT [None]
  - MUSCULOSKELETAL DISCOMFORT [None]
  - PAIN IN EXTREMITY [None]
  - HEADACHE [None]
  - MUSCLE SPASMS [None]
  - ARTHRALGIA [None]
  - HEART RATE ABNORMAL [None]
  - ATRIAL FIBRILLATION [None]
